FAERS Safety Report 9511011 (Version 1)
Quarter: 2013Q3

REPORT INFORMATION
  Report Type: Spontaneous
  Country: US (occurrence: None)
  Receive Date: 20130909
  Receipt Date: 20130909
  Transmission Date: 20140515
  Serious: Yes (Other)
  Sender: FDA-Public Use
  Company Number: None

PATIENT
  Age: 54 Year
  Sex: Female

DRUGS (1)
  1. ZELBORAF 240MG GENENTECH [Suspect]
     Indication: NEOPLASM MALIGNANT
     Dosage: 960MG Q12 HRS PO
     Route: 048
     Dates: start: 20130301, end: 20130906

REACTIONS (2)
  - Drug ineffective [None]
  - Neoplasm progression [None]
